FAERS Safety Report 9976071 (Version 2)
Quarter: 2014Q1

REPORT INFORMATION
  Report Type: Spontaneous
  Country: US (occurrence: US)
  Receive Date: 20140306
  Receipt Date: 20140306
  Transmission Date: 20141002
  Serious: No
  Sender: FDA-Public Use
  Company Number: US-ASTRAZENECA-2009SE11358

PATIENT
  Age: 61 Year
  Sex: Female
  Weight: 80.7 kg

DRUGS (5)
  1. CRESTOR [Suspect]
     Route: 048
     Dates: start: 200907
  2. CRESTOR [Suspect]
     Route: 048
     Dates: start: 2012
  3. TOPROL XL [Suspect]
     Route: 048
  4. SYNTHROID [Concomitant]
  5. FISH OIL [Concomitant]

REACTIONS (4)
  - Foot deformity [Unknown]
  - Tendonitis [Not Recovered/Not Resolved]
  - Memory impairment [Unknown]
  - Intentional drug misuse [Not Recovered/Not Resolved]
